FAERS Safety Report 4887985-4 (Version None)
Quarter: 2006Q1

REPORT INFORMATION
  Report Type: 
  Country: None (occurrence: None)
  Receive Date: 20060123
  Receipt Date: 20050718
  Transmission Date: 20060701
  Serious: Yes (Hospitalization, Disabling)
  Sender: FDA-Public Use
  Company Number: US-MERCK-0507USA02838

PATIENT
  Age: 50 Year
  Sex: Female
  Weight: 66 kg

DRUGS (10)
  1. VIOXX [Suspect]
     Indication: RHEUMATOID ARTHRITIS
     Route: 048
     Dates: start: 19990810, end: 20041001
  2. HUMIRA [Concomitant]
     Route: 065
  3. NORVASC [Concomitant]
     Route: 065
  4. CRESTOR [Concomitant]
     Route: 065
  5. NEXIUM [Concomitant]
     Route: 065
  6. ESTRATEST [Concomitant]
     Route: 065
  7. FORTEO [Concomitant]
     Route: 065
  8. PLAVIX [Concomitant]
     Route: 065
  9. SINGULAIR [Concomitant]
     Route: 065
  10. MACRODANTIN [Concomitant]
     Route: 065

REACTIONS (8)
  - BLOOD PRESSURE INCREASED [None]
  - BREAST RECONSTRUCTION [None]
  - CATARACT [None]
  - DIZZINESS [None]
  - GASTRIC ULCER [None]
  - HYPOAESTHESIA [None]
  - RHEUMATOID ARTHRITIS [None]
  - TRANSIENT ISCHAEMIC ATTACK [None]
